FAERS Safety Report 11783940 (Version 1)
Quarter: 2015Q4

REPORT INFORMATION
  Report Type: Spontaneous
  Country: GB (occurrence: GB)
  Receive Date: 20151128
  Receipt Date: 20151128
  Transmission Date: 20160305
  Serious: Yes (Congenital Anomaly)
  Sender: FDA-Public Use
  Company Number: GB-SUN PHARMACEUTICAL INDUSTRIES LTD-2015RR-106617

PATIENT

DRUGS (3)
  1. PHENYTOIN. [Suspect]
     Active Substance: PHENYTOIN
     Indication: EPILEPSY
     Dosage: 100 MG, TID
     Route: 048
  2. VALPROATE DE SODIUM [Suspect]
     Active Substance: VALPROATE SODIUM
     Indication: EPILEPSY
     Dosage: 2000 MG, UNK
     Route: 048
  3. CARBAMAZEPINE. [Suspect]
     Active Substance: CARBAMAZEPINE
     Indication: EPILEPSY
     Dosage: 600 MG, UNK
     Route: 048

REACTIONS (1)
  - Hyponatraemia [Not Recovered/Not Resolved]
